FAERS Safety Report 7591117-1 (Version None)
Quarter: 2011Q3

REPORT INFORMATION
  Report Type: 
  Country: None (occurrence: None)
  Receive Date: 20110705
  Receipt Date: 20110623
  Transmission Date: 20111222
  Serious: Yes (Hospitalization, Other)
  Sender: FDA-Public Use
  Company Number: US-ASTRAZENECA-2011SE18302

PATIENT
  Age: 85 Year
  Sex: Female

DRUGS (5)
  1. ALBUTEROL SULFATE AUTOHALER [Concomitant]
  2. NEXIUM [Suspect]
     Route: 048
  3. LEFLUNOMIDE [Concomitant]
  4. SYMBICORT [Concomitant]
  5. ALMEDIGDINS [Concomitant]

REACTIONS (11)
  - ULNA FRACTURE [None]
  - LOSS OF CONSCIOUSNESS [None]
  - OPEN REDUCTION OF FRACTURE [None]
  - DIZZINESS [None]
  - HEAD INJURY [None]
  - NERVOUS SYSTEM DISORDER [None]
  - RADIUS FRACTURE [None]
  - FALL [None]
  - PERIORBITAL HAEMATOMA [None]
  - MOUTH INJURY [None]
  - ACTIVITIES OF DAILY LIVING IMPAIRED [None]
